FAERS Safety Report 10643026 (Version 3)
Quarter: 2015Q1

REPORT INFORMATION
  Report Type: Report from Study
  Country: KR (occurrence: KR)
  Receive Date: 20141210
  Receipt Date: 20150223
  Transmission Date: 20150720
  Serious: Yes (Other)
  Sender: FDA-Public Use
  Company Number: KR-BAYER-2014-178464

PATIENT
  Age: 63 Year
  Sex: Male

DRUGS (1)
  1. NEXAVAR [Suspect]
     Active Substance: SORAFENIB
     Indication: HEPATOCELLULAR CARCINOMA
     Dosage: 400 MG, BID
     Route: 048
     Dates: start: 201407

REACTIONS (10)
  - Blister [Recovered/Resolved]
  - Gait disturbance [Recovered/Resolved]
  - Diarrhoea [None]
  - Pain in extremity [None]
  - Blood potassium increased [None]
  - Alopecia [Recovered/Resolved]
  - Hyperkeratosis [None]
  - Constipation [None]
  - Pain in extremity [Recovered/Resolved]
  - Abdominal pain lower [Not Recovered/Not Resolved]
